FAERS Safety Report 7710763-5 (Version None)
Quarter: 2011Q3

REPORT INFORMATION
  Report Type: 
  Country: None (occurrence: None)
  Receive Date: 20110825
  Receipt Date: 20110815
  Transmission Date: 20111222
  Serious: Yes (Congenital Anomaly, Other)
  Sender: FDA-Public Use
  Company Number: US-BAXTER-2011BH027011

PATIENT

DRUGS (6)
  1. FENTANYL CITRATE [Suspect]
     Route: 064
  2. BUPIVACAINE HCL [Suspect]
     Indication: MATERNAL EXPOSURE DURING PREGNANCY
     Route: 064
  3. FENTANYL CITRATE [Suspect]
     Indication: MATERNAL EXPOSURE DURING PREGNANCY
     Route: 064
  4. MORPHINE SULFATE [Suspect]
     Indication: MATERNAL EXPOSURE DURING PREGNANCY
     Route: 064
  5. BUPIVACAINE HCL [Suspect]
     Route: 064
  6. BUPIVACAINE HCL [Suspect]
     Route: 064

REACTIONS (3)
  - MATERNAL EXPOSURE DURING PREGNANCY [None]
  - CONGENITAL PULMONARY VALVE DISORDER [None]
  - FALLOT'S TETRALOGY [None]
